FAERS Safety Report 5006943-2 (Version None)
Quarter: 2006Q3

REPORT INFORMATION
  Report Type: 
  Country: None (occurrence: None)
  Receive Date: 20060516
  Receipt Date: 20060504
  Transmission Date: 20061208
  Serious: Yes (Disabling)
  Sender: FDA-Public Use
  Company Number: 6022400

PATIENT
  Age: 81 Year
  Sex: Male

DRUGS (10)
  1. LEVOTHYROXINE SODIUM [Suspect]
     Indication: DRUG USE FOR UNKNOWN INDICATION
     Dosage: 75 UG + 25 UG (100 MCG, 1 IN 1 D) ORAL
     Route: 048
  2. CORTANCYL  (PREDNISONE) [Suspect]
     Indication: DRUG USE FOR UNKNOWN INDICATION
     Dosage: 60 MG (60 MG, 1 D) ORAL
     Route: 048
     Dates: start: 20051027
  3. RIFAMPIN AND ISONIAZID [Suspect]
     Indication: DRUG USE FOR UNKNOWN INDICATION
     Dosage: 2 DOSAGE FORMS (2 DOSAGE FORMS, 1 D) ORAL
     Route: 048
     Dates: start: 20051027
  4. PREVISCAN  (FLUINDIONE) [Suspect]
     Indication: DRUG USE FOR UNKNOWN INDICATION
     Dosage: 15,000 MG (15 MG, 1 IN 1 D) ORAL
     Route: 048
     Dates: start: 20051227
  5. MYAMBUTOL [Suspect]
     Indication: DRUG USE FOR UNKNOWN INDICATION
     Dosage: 4 DOSAGE FORMS (4 DOSAGE FORMS, 1 D) ORAL
     Route: 048
     Dates: start: 20051027, end: 20060126
  6. CORDARONE [Concomitant]
  7. MODOPAR  (LEVODOPA, BENSERAZIDE HYDROCHLORIDE) [Concomitant]
  8. CACIT D3 (COLECALCIFEROL, CALCIUM CARBONATE) [Concomitant]
  9. FORADIL [Concomitant]
  10. PULMICORT [Concomitant]

REACTIONS (9)
  - ATROPHY [None]
  - BLINDNESS [None]
  - CATARACT [None]
  - DISEASE RECURRENCE [None]
  - EOSINOPHILIA [None]
  - GENERAL PHYSICAL HEALTH DETERIORATION [None]
  - OPTIC NEURITIS [None]
  - RETINITIS PIGMENTOSA [None]
  - TUBERCULOSIS [None]
